FAERS Safety Report 7033612-X (Version None)
Quarter: 2010Q4

REPORT INFORMATION
  Report Type: 
  Country: None (occurrence: None)
  Receive Date: 20101007
  Receipt Date: 20100927
  Transmission Date: 20110411
  Serious: Yes (Other)
  Sender: FDA-Public Use
  Company Number: US-PURDUE-USA-2010-0047731

PATIENT
  Age: 61 Year
  Sex: Female

DRUGS (3)
  1. DILAUDID [Suspect]
     Indication: PRODUCT USED FOR UNKNOWN INDICATION
  2. PRIALT [Suspect]
     Indication: PRODUCT USED FOR UNKNOWN INDICATION
  3. BACLOFEN [Suspect]
     Indication: COMPLEX REGIONAL PAIN SYNDROME
     Dosage: UNK
     Route: 037
     Dates: start: 20100615

REACTIONS (10)
  - DEHYDRATION [None]
  - DIZZINESS [None]
  - DRY MOUTH [None]
  - DRY SKIN [None]
  - HEADACHE [None]
  - HYPERTHYROIDISM [None]
  - PARAESTHESIA [None]
  - PYREXIA [None]
  - THROAT IRRITATION [None]
  - TINNITUS [None]
